FAERS Safety Report 8925379 (Version 1)
Quarter: 2012Q4

REPORT INFORMATION
  Report Type: 
  Country: DE (occurrence: DE)
  Receive Date: 20121126
  Receipt Date: 20121126
  Transmission Date: 20130627
  Serious: Yes (Hospitalization, Other)
  Sender: FDA-Public Use
  Company Number: DE-PFIZER INC-2012292567

PATIENT
  Age: 57 Year
  Sex: Male
  Weight: 94 kg

DRUGS (12)
  1. GENOTROPIN [Suspect]
     Indication: GROWTH HORMONE DEFICIENCY
     Dosage: 0.6 mg, 1x/day,7 injections/week
     Route: 058
     Dates: start: 20030328
  2. HYDROCORTISONE [Concomitant]
     Indication: ACTH DECREASED
     Dosage: UNK
     Dates: start: 19940715
  3. FLUDROCORTISONE [Concomitant]
     Indication: ACTH DECREASED
     Dosage: UNK
     Dates: start: 19940715
  4. EUTHYROX [Concomitant]
     Indication: UNSPECIFIED HYPOTHYROIDISM
     Dosage: UNK
     Dates: start: 19940715
  5. DESMOPRESSIN ACETATE [Concomitant]
     Indication: ADH DECREASED
     Dosage: UNK
     Dates: start: 19940715
  6. ASTONIN-H [Concomitant]
     Dosage: UNK
     Dates: start: 19940715
  7. ANDRODERM ^SMITH KLINE^ [Concomitant]
     Indication: TESTICULAR HYPOGONADISM
     Dosage: UNK
     Dates: start: 19940715
  8. ANDRODERM ^SMITH KLINE^ [Concomitant]
     Indication: LUTEINISING HORMONE DEFICIENCY
  9. ANDRODERM ^SMITH KLINE^ [Concomitant]
     Indication: FOLLICLE-STIMULATING HORMONE DEFICIENCY
  10. TESTOSTERONE ENANTATE [Concomitant]
     Indication: TESTICULAR HYPOGONADISM
     Dosage: UNK
     Dates: start: 19940715, end: 20031014
  11. TESTOSTERONE ENANTATE [Concomitant]
     Indication: LUTEINISING HORMONE DEFICIENCY
  12. TESTOSTERONE ENANTATE [Concomitant]
     Indication: FOLLICLE-STIMULATING HORMONE DEFICIENCY

REACTIONS (1)
  - Hypothalamo-pituitary disorder [Unknown]
